FAERS Safety Report 9125852 (Version 1)
Quarter: 2013Q1

REPORT INFORMATION
  Report Type: Spontaneous
  Country: US (occurrence: US)
  Receive Date: 20130228
  Receipt Date: 20130228
  Transmission Date: 20140127
  Serious: No
  Sender: FDA-Public Use
  Company Number: US-009507513-1302USA012481

PATIENT
  Sex: Female

DRUGS (4)
  1. COSOPT [Suspect]
     Indication: BLEPHAROSPASM
     Dosage: UNK
     Route: 031
  2. COSOPT [Suspect]
     Indication: APRAXIA
  3. ZIOPTAN [Concomitant]
     Dosage: UNK
  4. REFRESH TEARS LUBRICANT EYE DROPS [Concomitant]
     Dosage: UNK

REACTIONS (4)
  - Blepharospasm [Not Recovered/Not Resolved]
  - Eye irritation [Not Recovered/Not Resolved]
  - Drug dose omission [Unknown]
  - Product quality issue [Unknown]
